FAERS Safety Report 5245358-9 (Version None)
Quarter: 2007Q1

REPORT INFORMATION
  Report Type: 
  Country: None (occurrence: None)
  Receive Date: 20070223
  Receipt Date: 20070216
  Transmission Date: 20070707
  Serious: No
  Sender: FDA-Public Use
  Company Number: DEWYE826713DEC06

PATIENT
  Age: 18 Year
  Sex: Male

DRUGS (3)
  1. RAPAMUNE [Suspect]
     Indication: PROPHYLAXIS AGAINST TRANSPLANT REJECTION
     Dosage: 4 MG
     Route: 048
     Dates: start: 20041001
  2. RAPAMUNE [Suspect]
     Dosage: 2 MG
     Route: 048
  3. CELLCEPT [Concomitant]
     Indication: PROPHYLAXIS AGAINST TRANSPLANT REJECTION
     Dosage: UNKNOWN

REACTIONS (3)
  - BLOOD CREATINE PHOSPHOKINASE INCREASED [None]
  - CONDITION AGGRAVATED [None]
  - MUSCULAR WEAKNESS [None]
